FAERS Safety Report 25012518 (Version 1)
Quarter: 2025Q1

REPORT INFORMATION
  Report Type: Spontaneous
  Country: CN (occurrence: CN)
  Receive Date: 20250226
  Receipt Date: 20250226
  Transmission Date: 20250409
  Serious: Yes (Hospitalization)
  Sender: BOEHRINGER INGELHEIM
  Company Number: CN-BoehringerIngelheim-2025-BI-011136

PATIENT
  Age: 1 Year
  Sex: Male
  Weight: 10.600 kg

DRUGS (5)
  1. ATROVENT [Suspect]
     Active Substance: IPRATROPIUM BROMIDE
     Indication: Pneumonitis
     Dates: start: 20200914, end: 20200919
  2. PULMICORT RESPULES [Suspect]
     Active Substance: BUDESONIDE
     Indication: Pneumonitis
     Dosage: FOA SUSPENSION
     Dates: start: 20200914, end: 20200919
  3. BRICANYL [Suspect]
     Active Substance: TERBUTALINE SULFATE
     Indication: Pneumonitis
     Dates: start: 20200914, end: 20200919
  4. SODIUM CHLORIDE [Concomitant]
     Active Substance: SODIUM CHLORIDE
     Indication: Drug therapy
     Dates: start: 20200914, end: 20200919
  5. PIPERACILLIN SODIUM\TAZOBACTAM SODIUM [Concomitant]
     Active Substance: PIPERACILLIN SODIUM\TAZOBACTAM SODIUM
     Indication: Pneumonitis
     Dates: start: 20200914, end: 20200914

REACTIONS (1)
  - Oral candidiasis [Recovering/Resolving]

NARRATIVE: CASE EVENT DATE: 20200916
